FAERS Safety Report 13956693 (Version 1)
Quarter: 2017Q3

REPORT INFORMATION
  Report Type: Report from Study
  Country: US (occurrence: US)
  Receive Date: 20170911
  Receipt Date: 20170911
  Transmission Date: 20171128
  Serious: No
  Sender: FDA-Public Use
  Company Number: PHEH2017US028949

PATIENT
  Sex: Male
  Weight: 22.8 kg

DRUGS (2)
  1. MULTIVITAMIN [Concomitant]
     Active Substance: VITAMINS
     Indication: PRODUCT USED FOR UNKNOWN INDICATION
     Route: 065
  2. OMNITROPE [Suspect]
     Active Substance: SOMATROPIN
     Indication: HYPOPITUITARISM
     Dosage: 0.9 MG, QD (X7 DAYS/WEEK)
     Route: 058
     Dates: start: 201608

REACTIONS (4)
  - Headache [Unknown]
  - Pain in extremity [Unknown]
  - Urticaria [Unknown]
  - Pruritus [Unknown]
